FAERS Safety Report 9473931 (Version 1)
Quarter: 2013Q3

REPORT INFORMATION
  Report Type: Spontaneous
  Country: US (occurrence: US)
  Receive Date: 20130823
  Receipt Date: 20130823
  Transmission Date: 20140515
  Serious: No
  Sender: FDA-Public Use
  Company Number: US-BRISTOL-MYERS SQUIBB COMPANY-17149733

PATIENT
  Age: 82 Year
  Sex: Male

DRUGS (8)
  1. SPRYCEL [Suspect]
     Indication: CHRONIC MYELOID LEUKAEMIA
     Dates: start: 20121112
  2. AMLODIPINE [Concomitant]
  3. CRESTOR [Concomitant]
  4. DIOVAN HCT [Concomitant]
  5. K-PHOS [Concomitant]
  6. POTASSIUM CHLORIDE [Concomitant]
  7. DOXAZOSIN MESYLATE [Concomitant]
  8. ASPIRIN [Concomitant]

REACTIONS (4)
  - Palpitations [Unknown]
  - Nausea [Unknown]
  - Diarrhoea [Unknown]
  - Headache [Unknown]
